FAERS Safety Report 11682548 (Version 2)
Quarter: 2015Q4

REPORT INFORMATION
  Report Type: Spontaneous
  Country: DE (occurrence: DE)
  Receive Date: 20151029
  Receipt Date: 20151118
  Transmission Date: 20160304
  Serious: Yes (Hospitalization)
  Sender: FDA-Public Use
  Company Number: GXKR2015DE004827

PATIENT
  Age: 67 Year
  Sex: Male
  Weight: 90 kg

DRUGS (2)
  1. PRAMIPEXOL ? 1 A PHARMA [Suspect]
     Active Substance: PRAMIPEXOLE
     Indication: RESTLESS LEGS SYNDROME
  2. PRAMIPEXOL ? 1 A PHARMA [Suspect]
     Active Substance: PRAMIPEXOLE
     Indication: PARKINSONISM
     Dosage: 1.05 MG, QD
     Route: 048
     Dates: start: 20150915

REACTIONS (3)
  - Product use issue [Unknown]
  - Flatulence [Recovered/Resolved]
  - Constipation [Recovered/Resolved]

NARRATIVE: CASE EVENT DATE: 201509
